FAERS Safety Report 6894968-1 (Version None)
Quarter: 2010Q3

REPORT INFORMATION
  Report Type: 
  Country: None (occurrence: None)
  Receive Date: 20100802
  Receipt Date: 20100721
  Transmission Date: 20110219
  Serious: Yes (Life-Threatening, Other)
  Sender: FDA-Public Use
  Company Number: JP-ROCHE-714906

PATIENT
  Sex: Female
  Weight: 44 kg

DRUGS (39)
  1. XELODA [Suspect]
     Indication: BREAST CANCER RECURRENT
     Route: 048
     Dates: start: 20080109, end: 20080115
  2. XELODA [Suspect]
     Route: 048
     Dates: start: 20080116, end: 20080415
  3. XELODA [Suspect]
     Route: 048
     Dates: start: 20080423, end: 20080513
  4. XELODA [Suspect]
     Route: 048
     Dates: start: 20080521, end: 20080610
  5. XELODA [Suspect]
     Route: 048
     Dates: start: 20080618, end: 20080709
  6. XELODA [Suspect]
     Route: 048
     Dates: start: 20080716, end: 20080806
  7. XELODA [Suspect]
     Route: 048
     Dates: start: 20080813, end: 20080903
  8. XELODA [Suspect]
     Dosage: DOSAGE IS UNCERTAIN
     Route: 048
     Dates: start: 20081201, end: 20090924
  9. XELODA [Suspect]
     Route: 048
     Dates: start: 20100602, end: 20100622
  10. XELODA [Suspect]
     Route: 048
     Dates: start: 20100630, end: 20100706
  11. HERCEPTIN [Suspect]
     Indication: BREAST CANCER RECURRENT
     Dosage: ADJUVANT THERAPY
     Route: 041
  12. HERCEPTIN [Suspect]
     Dosage: DOSAGE UNCERTAIN
     Route: 041
     Dates: start: 20070531
  13. HERCEPTIN [Suspect]
     Route: 041
     Dates: start: 20070803, end: 20070803
  14. HERCEPTIN [Suspect]
     Route: 041
     Dates: start: 20070808, end: 20080924
  15. HERCEPTIN [Suspect]
     Dosage: DOSAGE IS UNCERTAIN
     Route: 041
     Dates: start: 20081201, end: 20090924
  16. HERCEPTIN [Suspect]
     Route: 041
     Dates: start: 20100602, end: 20100602
  17. HERCEPTIN [Suspect]
     Route: 041
     Dates: start: 20100609, end: 20100630
  18. EPIRUBICIN HYDROCHLORIDE [Concomitant]
     Dosage: DOSAGE IS UNCERTAIN.
     Route: 042
  19. CYCLOPHOSPHAMIDE [Concomitant]
     Dosage: DOSAGE IS UNCERTAIN.
  20. PACLITAXEL [Concomitant]
     Dosage: DOSAGE IS UNCERTAIN.
     Route: 041
     Dates: start: 20070531
  21. PACLITAXEL [Concomitant]
     Route: 041
     Dates: start: 20070808, end: 20071205
  22. FLUOROURACIL [Concomitant]
     Dosage: DOSAGE UNCERTAIN
     Route: 041
  23. VOLTAREN [Concomitant]
     Route: 048
     Dates: start: 20070803, end: 20070807
  24. SELBEX [Concomitant]
     Route: 048
     Dates: start: 20070803, end: 20070807
  25. DECADRON [Concomitant]
     Route: 041
     Dates: start: 20070808, end: 20071205
  26. GASPORT [Concomitant]
     Route: 042
     Dates: start: 20070808, end: 20071205
  27. KYTRIL [Concomitant]
     Route: 041
     Dates: start: 20070808, end: 20071205
  28. FLOMOX [Concomitant]
     Route: 048
     Dates: start: 20071114, end: 20071116
  29. MUCOSTA [Concomitant]
     Route: 048
     Dates: start: 20071114, end: 20071116
  30. MUCODYNE [Concomitant]
     Route: 048
     Dates: start: 20071114, end: 20071116
  31. PYDOXAL [Concomitant]
     Route: 048
     Dates: start: 20080109, end: 20080417
  32. PYDOXAL [Concomitant]
     Route: 048
     Dates: start: 20080514, end: 20080603
  33. PYDOXAL [Concomitant]
     Route: 048
     Dates: start: 20080618, end: 20080930
  34. PYDOXAL [Concomitant]
     Route: 048
     Dates: start: 20100602, end: 20100706
  35. TOUGHMAC [Concomitant]
     Route: 048
     Dates: start: 20080116, end: 20080417
  36. TOUGHMAC [Concomitant]
     Route: 048
     Dates: start: 20080514, end: 20080603
  37. TOUGHMAC [Concomitant]
     Route: 048
     Dates: start: 20080618, end: 20080930
  38. ZOMETA [Concomitant]
     Route: 041
     Dates: start: 20100602, end: 20100602
  39. HYSRON-H [Concomitant]
     Route: 048
     Dates: start: 20100602, end: 20100706

REACTIONS (3)
  - LOSS OF CONSCIOUSNESS [None]
  - VENTRICULAR EXTRASYSTOLES [None]
  - VENTRICULAR FIBRILLATION [None]
